FAERS Safety Report 8044604-6 (Version None)
Quarter: 2012Q1

REPORT INFORMATION
  Report Type: 
  Country: None (occurrence: None)
  Receive Date: 20120113
  Receipt Date: 20120113
  Transmission Date: 20120608
  Serious: Yes (Death)
  Sender: FDA-Public Use
  Company Number: None

PATIENT
  Age: 77 Year
  Sex: Female
  Weight: 52 kg

DRUGS (20)
  1. LORAZEPAM [Concomitant]
     Route: 042
  2. ALDACTAZIDE [Concomitant]
     Route: 048
  3. METOPROLOL SUCCINATE EXTENDED RELEASE [Concomitant]
     Route: 048
  4. METHYLPREDNISOLONE SOD. SUCCINATE [Concomitant]
     Route: 042
  5. PHYTONADIONE [Concomitant]
  6. ROSUVASTATIN [Concomitant]
     Route: 048
  7. LISINOPRIL [Concomitant]
     Route: 048
  8. PANTOPRAZOLE [Concomitant]
     Route: 048
  9. RIFAXIMIN [Concomitant]
     Route: 048
  10. MEMANTINE [Concomitant]
     Route: 048
  11. LEVOTHYROXINE SODIUM [Concomitant]
     Route: 048
  12. WARFARIN SODIUM [Concomitant]
     Route: 048
  13. INSULIN ASPART VARIABLE DOSE [Concomitant]
  14. SUTENT [Suspect]
     Indication: NEOPLASM MALIGNANT
     Dosage: 12.5MG + 25MG =  37.5MG DOSE
     Route: 048
     Dates: start: 20111118, end: 20120102
  15. SUTENT [Suspect]
     Indication: NEOPLASM PROGRESSION
     Dosage: 12.5MG + 25MG =  37.5MG DOSE
     Route: 048
     Dates: start: 20111118, end: 20120102
  16. AMIODARONE HCL [Concomitant]
     Route: 048
  17. CITALOPRAM HYDROBROMIDE [Interacting]
     Route: 048
  18. FUROSEMIDE [Concomitant]
     Route: 048
  19. CEFTRIAXONE [Concomitant]
     Route: 042
  20. MORPHINE SULFATE [Concomitant]
     Route: 042

REACTIONS (1)
  - ACUTE HEPATIC FAILURE [None]
